FAERS Safety Report 12211095 (Version 1)
Quarter: 2016Q1

REPORT INFORMATION
  Report Type: Spontaneous
  Country: US (occurrence: US)
  Receive Date: 20160325
  Receipt Date: 20160325
  Transmission Date: 20160526
  Serious: Yes (Other)
  Sender: FDA-Public Use
  Company Number: US-PFIZER INC-2016169090

PATIENT
  Age: 65 Year
  Sex: Female
  Weight: 68.4 kg

DRUGS (2)
  1. ADVIL [Suspect]
     Active Substance: IBUPROFEN
     Indication: HEADACHE
     Dosage: 200 MG, TABLET, ONE OR TWO TIMES A DAY WHEN NEEDED
     Route: 048
  2. ADVIL [Suspect]
     Active Substance: IBUPROFEN
     Indication: MYALGIA

REACTIONS (9)
  - Malaise [Unknown]
  - Gastric disorder [Unknown]
  - Vomiting [Unknown]
  - Upper limb fracture [Unknown]
  - Colitis ulcerative [Unknown]
  - Gastric ulcer [Unknown]
  - Abdominal pain upper [Unknown]
  - Joint dislocation [Unknown]
  - Gastritis [Unknown]
